FAERS Safety Report 13869932 (Version 1)
Quarter: 2017Q3

REPORT INFORMATION
  Report Type: Spontaneous
  Country: AU (occurrence: AU)
  Receive Date: 20170815
  Receipt Date: 20170815
  Transmission Date: 20171127
  Serious: Yes (Hospitalization, Other)
  Sender: FDA-Public Use
  Company Number: AU-GLAXOSMITHKLINE-AU2017125997

PATIENT
  Age: 59 Year
  Sex: Male

DRUGS (6)
  1. DASABUVIR [Concomitant]
     Active Substance: DASABUVIR
     Indication: ANTIVIRAL PROPHYLAXIS
     Dosage: UNK
  2. RITONAVIR. [Interacting]
     Active Substance: RITONAVIR
     Indication: ANTIVIRAL PROPHYLAXIS
     Dosage: UNK
     Route: 065
  3. OMBITASVIR [Concomitant]
     Active Substance: OMBITASVIR
     Indication: ANTIVIRAL PROPHYLAXIS
     Dosage: UNK
  4. RIBAVIRIN. [Concomitant]
     Active Substance: RIBAVIRIN
     Indication: ANTIVIRAL PROPHYLAXIS
     Dosage: UNK
  5. PARITAPREVIR [Concomitant]
     Active Substance: PARITAPREVIR
     Indication: ANTIVIRAL PROPHYLAXIS
     Dosage: UNK
  6. FLUTICASONE PROPIONATE+SALMETEROL XINAFOATE [Suspect]
     Active Substance: FLUTICASONE PROPIONATE\SALMETEROL XINAFOATE
     Indication: ASTHMA
     Dosage: UNK
     Route: 065

REACTIONS (2)
  - Cushing^s syndrome [Unknown]
  - Drug interaction [Unknown]
